FAERS Safety Report 10905590 (Version 9)
Quarter: 2016Q2

REPORT INFORMATION
  Report Type: Spontaneous
  Country: US (occurrence: US)
  Receive Date: 20150311
  Receipt Date: 20160613
  Transmission Date: 20160815
  Serious: Yes (Other)
  Sender: FDA-Public Use
  Company Number: US-PFIZER INC-2015082673

PATIENT
  Age: 73 Year
  Sex: Female
  Weight: 75 kg

DRUGS (6)
  1. LYRICA [Suspect]
     Active Substance: PREGABALIN
     Dosage: 250 MG, DAILY (50MG IN THE MORNING AND 2 100MG AT NIGHT)
  2. NEXIUM [Concomitant]
     Active Substance: ESOMEPRAZOLE MAGNESIUM
  3. PLAQUENIL [Concomitant]
     Active Substance: HYDROXYCHLOROQUINE SULFATE
  4. LYRICA [Suspect]
     Active Substance: PREGABALIN
     Indication: NEUROPATHY PERIPHERAL
     Dosage: 50 MG IN THE MORNING AND 200 MG AT NIGHT
     Route: 048
     Dates: start: 200508
  5. LYRICA [Suspect]
     Active Substance: PREGABALIN
     Dosage: TWO 50MG CAPSULES TO EQUAL 100MG
  6. ALEVE [Concomitant]
     Active Substance: NAPROXEN SODIUM
     Indication: PAIN

REACTIONS (7)
  - Fatigue [Unknown]
  - Arthralgia [Unknown]
  - Abasia [Unknown]
  - Intentional product misuse [Unknown]
  - Blood glucose fluctuation [Unknown]
  - Fall [Unknown]
  - Burning sensation [Unknown]
